FAERS Safety Report 10561568 (Version 1)
Quarter: 2014Q4

REPORT INFORMATION
  Report Type: Spontaneous
  Country: TW (occurrence: TW)
  Receive Date: 20141103
  Receipt Date: 20141103
  Transmission Date: 20150529
  Serious: Yes (Other)
  Sender: FDA-Public Use
  Company Number: ALCN2014TW006095

PATIENT
  Sex: Male

DRUGS (1)
  1. MYDRIACYL [Suspect]
     Active Substance: TROPICAMIDE
     Indication: MYOPIA
     Route: 047

REACTIONS (3)
  - Off label use [Unknown]
  - Ocular discomfort [Unknown]
  - Corneal disorder [Unknown]
